FAERS Safety Report 21188296 (Version 1)
Quarter: 2022Q3

REPORT INFORMATION
  Report Type: Report from Study
  Country: US (occurrence: None)
  Receive Date: 20220809
  Receipt Date: 20220809
  Transmission Date: 20221027
  Serious: Yes (Hospitalization)
  Sender: FDA-Public Use
  Company Number: US-ROCHE-3148830

PATIENT
  Age: 75 Year

DRUGS (99)
  1. ACALABRUTINIB [Suspect]
     Active Substance: ACALABRUTINIB
     Indication: Chronic lymphocytic leukaemia
     Route: 065
     Dates: start: 20160128
  2. ACALABRUTINIB [Suspect]
     Active Substance: ACALABRUTINIB
     Route: 065
     Dates: start: 20160225, end: 20160323
  3. ACALABRUTINIB [Suspect]
     Active Substance: ACALABRUTINIB
     Route: 065
     Dates: start: 20160324, end: 20160420
  4. ACALABRUTINIB [Suspect]
     Active Substance: ACALABRUTINIB
     Route: 065
     Dates: start: 20160421, end: 20160518
  5. ACALABRUTINIB [Suspect]
     Active Substance: ACALABRUTINIB
     Route: 065
     Dates: start: 20160519, end: 20160612
  6. ACALABRUTINIB [Suspect]
     Active Substance: ACALABRUTINIB
     Route: 065
     Dates: start: 20160613, end: 20160616
  7. ACALABRUTINIB [Suspect]
     Active Substance: ACALABRUTINIB
     Route: 065
     Dates: start: 20160617, end: 20160617
  8. ACALABRUTINIB [Suspect]
     Active Substance: ACALABRUTINIB
     Route: 065
     Dates: start: 20160618, end: 20160804
  9. ACALABRUTINIB [Suspect]
     Active Substance: ACALABRUTINIB
     Route: 065
     Dates: start: 20160805, end: 20160805
  10. ACALABRUTINIB [Suspect]
     Active Substance: ACALABRUTINIB
     Route: 065
     Dates: start: 20160806, end: 20160825
  11. ACALABRUTINIB [Suspect]
     Active Substance: ACALABRUTINIB
     Route: 065
     Dates: start: 20211114, end: 20211114
  12. ACALABRUTINIB [Suspect]
     Active Substance: ACALABRUTINIB
     Route: 065
     Dates: start: 20211115, end: 20211125
  13. ACALABRUTINIB [Suspect]
     Active Substance: ACALABRUTINIB
     Route: 065
     Dates: start: 20211126, end: 20211126
  14. ACALABRUTINIB [Suspect]
     Active Substance: ACALABRUTINIB
     Route: 065
     Dates: start: 20211127, end: 20211219
  15. ACALABRUTINIB [Suspect]
     Active Substance: ACALABRUTINIB
     Route: 065
     Dates: start: 20211220, end: 20211220
  16. ACALABRUTINIB [Suspect]
     Active Substance: ACALABRUTINIB
     Route: 065
     Dates: start: 20220121, end: 20220121
  17. ACALABRUTINIB [Suspect]
     Active Substance: ACALABRUTINIB
     Route: 065
     Dates: start: 20220122, end: 20220127
  18. OBINUTUZUMAB [Suspect]
     Active Substance: OBINUTUZUMAB
     Indication: Chronic lymphocytic leukaemia
     Route: 042
     Dates: start: 20160225
  19. OBINUTUZUMAB [Suspect]
     Active Substance: OBINUTUZUMAB
     Route: 042
     Dates: start: 20160714
  20. MIDAZOLAM [Concomitant]
     Active Substance: MIDAZOLAM
  21. FENTANYL [Concomitant]
     Active Substance: FENTANYL
  22. IOPAMIDOL [Concomitant]
     Active Substance: IOPAMIDOL
  23. ALLOPURINOL [Concomitant]
     Active Substance: ALLOPURINOL
  24. ASPIRIN [Concomitant]
     Active Substance: ASPIRIN
  25. FINASTERIDE [Concomitant]
     Active Substance: FINASTERIDE
  26. DEXAMETHASONE [Concomitant]
     Active Substance: DEXAMETHASONE
  27. DIPHENHYDRAMINE [Concomitant]
     Active Substance: DIPHENHYDRAMINE
  28. INSULIN GLARGINE [Concomitant]
     Active Substance: INSULIN GLARGINE
  29. LIRAGLUTIDE [Concomitant]
     Active Substance: LIRAGLUTIDE
  30. LEVAQUIN [Concomitant]
     Active Substance: LEVOFLOXACIN
  31. TRAMADOL [Concomitant]
     Active Substance: TRAMADOL
  32. METAMORPHINE [Concomitant]
  33. GLIPIZIDE [Concomitant]
     Active Substance: GLIPIZIDE
  34. TAMSULOSIN [Concomitant]
     Active Substance: TAMSULOSIN
  35. ACETAMINOPHEN [Concomitant]
     Active Substance: ACETAMINOPHEN
  36. KEFLEX [Concomitant]
     Active Substance: CEPHALEXIN
  37. INSULINE LISPRO [Concomitant]
  38. ACYCLOVIR [Concomitant]
     Active Substance: ACYCLOVIR
  39. CINNAMON\HERBALS [Concomitant]
     Active Substance: CINNAMON\HERBALS
  40. HYDROCORTISONE SODIUM SUCCINATE [Concomitant]
     Active Substance: HYDROCORTISONE SODIUM SUCCINATE
  41. MORPHINE [Concomitant]
     Active Substance: MORPHINE
  42. ONDANSETRON [Concomitant]
     Active Substance: ONDANSETRON
  43. BISACODYL [Concomitant]
     Active Substance: BISACODYL
  44. OXYCODONE [Concomitant]
     Active Substance: OXYCODONE
  45. LOPERAMIDE HYDROCHLORIDE [Concomitant]
     Active Substance: LOPERAMIDE HYDROCHLORIDE
  46. LORAZEPAM [Concomitant]
     Active Substance: LORAZEPAM
  47. DEXTROSE [Concomitant]
     Active Substance: DEXTROSE
  48. MUPIROCIN [Concomitant]
     Active Substance: MUPIROCIN
  49. LORAZEPAM [Concomitant]
     Active Substance: LORAZEPAM
  50. FLUTICASONE [Concomitant]
     Active Substance: FLUTICASONE
  51. MUPIROCIN [Concomitant]
     Active Substance: MUPIROCIN
  52. GADOBENATE DIMEGLUMINE [Concomitant]
     Active Substance: GADOBENATE DIMEGLUMINE
  53. DICLOFENAC SODIUM [Concomitant]
     Active Substance: DICLOFENAC SODIUM
  54. DOCUSATE SODIUM [Concomitant]
     Active Substance: DOCUSATE SODIUM
  55. AMLODIPINE [Concomitant]
     Active Substance: AMLODIPINE BESYLATE
  56. CETIRIZINE [Concomitant]
     Active Substance: CETIRIZINE HYDROCHLORIDE
  57. LACTULOSE [Concomitant]
     Active Substance: LACTULOSE
  58. GLUCAGEN [Concomitant]
     Active Substance: GLUCAGON HYDROCHLORIDE
  59. POTASSIUM CHLORIDE [Concomitant]
     Active Substance: POTASSIUM CHLORIDE
  60. PIPERACILLIN [Concomitant]
     Active Substance: PIPERACILLIN
  61. METOCLOPRAMIDE [Concomitant]
     Active Substance: METOCLOPRAMIDE
  62. SUCCINYLCHOLINE [Concomitant]
     Active Substance: SUCCINYLCHOLINE
  63. BUPIVACAINE [Concomitant]
     Active Substance: BUPIVACAINE
  64. POLYETHYLENE GLYCOL [Concomitant]
     Active Substance: POLYETHYLENE GLYCOL
  65. ROCURONIUM [Concomitant]
     Active Substance: ROCURONIUM BROMIDE
  66. PROPOFOL [Concomitant]
     Active Substance: PROPOFOL
  67. OXYCODONE [Concomitant]
     Active Substance: OXYCODONE
  68. MAGNESIUM SULFATE [Concomitant]
     Active Substance: MAGNESIUM SULFATE
  69. VASOPRESSIN [Concomitant]
     Active Substance: VASOPRESSIN
  70. HYDROMORPHONE [Concomitant]
     Active Substance: HYDROMORPHONE
  71. MAGNESIUM SULFATE [Concomitant]
     Active Substance: MAGNESIUM SULFATE
  72. NEOSTIGMINE [Concomitant]
     Active Substance: NEOSTIGMINE
  73. LACTATED RINGERS SOLUTION [Concomitant]
     Active Substance: CALCIUM CHLORIDE\POTASSIUM CHLORIDE\SODIUM CHLORIDE\SODIUM LACTATE
  74. NALOXONE [Concomitant]
     Active Substance: NALOXONE
  75. GLYCOPYRROLATE [Concomitant]
     Active Substance: GLYCOPYRROLATE
  76. IOPAMIDOL [Concomitant]
     Active Substance: IOPAMIDOL
  77. ROPIVACAINE [Concomitant]
     Active Substance: ROPIVACAINE
  78. IOPAMIDOL [Concomitant]
     Active Substance: IOPAMIDOL
  79. POTASSIUM PHOSPHATE [Concomitant]
     Active Substance: POTASSIUM PHOSPHATE
  80. PROPOFOL [Concomitant]
     Active Substance: PROPOFOL
  81. KETOROLAC [Concomitant]
     Active Substance: KETOROLAC TROMETHAMINE
  82. TRANEXAMIC ACID [Concomitant]
     Active Substance: TRANEXAMIC ACID
  83. CEPHALEXIN [Concomitant]
     Active Substance: CEPHALEXIN
  84. SENNA [Concomitant]
     Active Substance: SENNA LEAF\SENNOSIDES\SENNOSIDES A AND B
  85. HYDROMORPHONE [Concomitant]
     Active Substance: HYDROMORPHONE
  86. LIDOCAINE [Concomitant]
     Active Substance: LIDOCAINE
  87. GLUCAGON [Concomitant]
     Active Substance: GLUCAGON
  88. GLIPIZIDE [Concomitant]
     Active Substance: GLIPIZIDE
  89. SIMVASTATIN [Concomitant]
     Active Substance: SIMVASTATIN
  90. TRAZODONE [Concomitant]
     Active Substance: TRAZODONE HYDROCHLORIDE
  91. CHOLECALCIFEROL [Concomitant]
     Active Substance: CHOLECALCIFEROL
  92. FUROSEMIDE [Concomitant]
     Active Substance: FUROSEMIDE
  93. GABAPENTIN [Concomitant]
     Active Substance: GABAPENTIN
  94. TAMSULOSIN [Concomitant]
     Active Substance: TAMSULOSIN
  95. FLAGYL [Concomitant]
     Active Substance: METRONIDAZOLE\METRONIDAZOLE HYDROCHLORIDE
  96. DALTEPARIN [Concomitant]
     Active Substance: DALTEPARIN
  97. FINASTERIDE [Concomitant]
     Active Substance: FINASTERIDE
  98. CEFEPIME [Concomitant]
     Active Substance: CEFEPIME HYDROCHLORIDE
  99. HERBALS\VITIS VINIFERA SEED [Concomitant]
     Active Substance: HERBALS\VITIS VINIFERA SEED

REACTIONS (1)
  - Post procedural haemorrhage [Not Recovered/Not Resolved]

NARRATIVE: CASE EVENT DATE: 20220725
